FAERS Safety Report 4751525-0 (Version None)
Quarter: 2005Q3

REPORT INFORMATION
  Report Type: 
  Country: None (occurrence: None)
  Receive Date: 20050824
  Receipt Date: 20050816
  Transmission Date: 20060218
  Serious: Yes (Hospitalization)
  Sender: FDA-Public Use
  Company Number: PHHO2005GB13027

PATIENT
  Age: 76 Year
  Sex: Female

DRUGS (1)
  1. LETROZOLE [Suspect]
     Indication: BREAST CANCER METASTATIC
     Dosage: 2.5 MG, QD
     Route: 048
     Dates: start: 20050506

REACTIONS (4)
  - ATRIAL FIBRILLATION [None]
  - BACK PAIN [None]
  - FATIGUE [None]
  - URINARY TRACT INFECTION [None]
